FAERS Safety Report 12776916 (Version 2)
Quarter: 2016Q3

REPORT INFORMATION
  Report Type: Report from Study
  Country: NZ (occurrence: NZ)
  Receive Date: 20160923
  Receipt Date: 20160927
  Transmission Date: 20161109
  Serious: Yes (Hospitalization)
  Sender: FDA-Public Use
  Company Number: NZ-ABBVIE-16K-118-1734258-00

PATIENT
  Age: 18 Year
  Sex: Female

DRUGS (5)
  1. MEBEVERINE [Concomitant]
     Active Substance: MEBEVERINE
     Indication: PRODUCT USED FOR UNKNOWN INDICATION
     Dates: start: 20160718
  2. HUMIRA [Suspect]
     Active Substance: ADALIMUMAB
     Indication: CROHN^S DISEASE
     Route: 058
     Dates: start: 20160722, end: 20160920
  3. AVA 30 ED [Concomitant]
     Indication: PRODUCT USED FOR UNKNOWN INDICATION
     Route: 048
  4. AZATHIOPRINE. [Concomitant]
     Active Substance: AZATHIOPRINE
     Indication: PRODUCT USED FOR UNKNOWN INDICATION
     Dosage: NOCTE
     Dates: start: 20160518
  5. CHOLECALCIFEROL [Concomitant]
     Active Substance: CHOLECALCIFEROL
     Indication: PRODUCT USED FOR UNKNOWN INDICATION

REACTIONS (8)
  - Crohn^s disease [Recovering/Resolving]
  - Fatigue [Unknown]
  - Malaise [Unknown]
  - Crohn^s disease [Unknown]
  - Mesenteric vascular occlusion [Unknown]
  - Constipation [Unknown]
  - Body temperature increased [Unknown]
  - Vomiting [Unknown]

NARRATIVE: CASE EVENT DATE: 20160911
